FAERS Safety Report 6776803-5 (Version None)
Quarter: 2010Q2

REPORT INFORMATION
  Report Type: 
  Country: None (occurrence: None)
  Receive Date: 20100617
  Receipt Date: 20100617
  Transmission Date: 20101027
  Serious: Yes (Disabling)
  Sender: FDA-Public Use
  Company Number: None

PATIENT
  Age: 39 Year
  Sex: Female
  Weight: 99 kg

DRUGS (13)
  1. VANCOMYCIN [Suspect]
  2. ZOVIRAX [Suspect]
  3. CATHFLO ACTIVASE [Concomitant]
  4. TYGACIL [Concomitant]
  5. AVELOX [Concomitant]
  6. CLEOCIN [Concomitant]
  7. KAYEXALATE [Concomitant]
  8. LORTAB [Concomitant]
  9. MORPHINE [Concomitant]
  10. COUMADIN [Concomitant]
  11. SOLU-MEDROL [Concomitant]
  12. ZOSYN [Suspect]
  13. VFEND [Suspect]

REACTIONS (2)
  - RENAL FAILURE ACUTE [None]
  - TOE AMPUTATION [None]
